FAERS Safety Report 7250982-8 (Version None)
Quarter: 2011Q1

REPORT INFORMATION
  Report Type: 
  Country: None (occurrence: None)
  Receive Date: 20110128
  Receipt Date: 20110118
  Transmission Date: 20110831
  Serious: Yes (Death, Hospitalization)
  Sender: FDA-Public Use
  Company Number: B0673655A

PATIENT
  Sex: Female
  Weight: 47.6 kg

DRUGS (3)
  1. MORPHINE HYDROCHLORIDE [Concomitant]
     Dosage: 30MG PER DAY
     Route: 048
     Dates: start: 20100401
  2. RAMOSETRON HYDROCHLORIDE [Concomitant]
     Dosage: .3MG PER DAY
     Route: 042
     Dates: start: 20100715
  3. HYCAMTIN [Suspect]
     Dosage: 1MG PER DAY
     Route: 042
     Dates: start: 20100715

REACTIONS (2)
  - NEUTROPHIL COUNT DECREASED [None]
  - LUNG NEOPLASM MALIGNANT [None]
